FAERS Safety Report 18375177 (Version 1)
Quarter: 2020Q4

REPORT INFORMATION
  Report Type: Report from Study
  Country: None (occurrence: US)
  Receive Date: 20201012
  Receipt Date: 20201012
  Transmission Date: 20210114
  Serious: Yes (Other)
  Sender: FDA-Public Use
  Company Number: US-ABBVIE-20K-163-3559490-00

PATIENT
  Sex: Male

DRUGS (5)
  1. VENCLEXTA [Suspect]
     Active Substance: VENETOCLAX
     Indication: ACUTE LYMPHOCYTIC LEUKAEMIA RECURRENT
     Dosage: 120MG DAY 1, 250MG DAY 2, 500MG DAY 3-DAY 28 RAMP UP DOSING?20MG AND 100MG TABLET
     Route: 048
     Dates: start: 20200817
  2. VENCLEXTA [Suspect]
     Active Substance: VENETOCLAX
     Dosage: MAINTENANCE 500MG DAILY DOSE
     Route: 048
     Dates: start: 20200817
  3. VINCRISTINE [Concomitant]
     Active Substance: VINCRISTINE
     Indication: PRODUCT USED FOR UNKNOWN INDICATION
     Dosage: 1.5 MG/M2
  4. PEGASPARGASE [Concomitant]
     Active Substance: PEGASPARGASE
     Indication: PRODUCT USED FOR UNKNOWN INDICATION
     Dosage: 2500 UNITS/M2
  5. MITOXANTRONE [Concomitant]
     Active Substance: MITOXANTRONE HYDROCHLORIDE
     Indication: PRODUCT USED FOR UNKNOWN INDICATION
     Dosage: 10 MG/M2

REACTIONS (2)
  - Off label use [Unknown]
  - Bone marrow transplant [Unknown]
